FAERS Safety Report 9240178 (Version 1)
Quarter: 2013Q2

REPORT INFORMATION
  Report Type: Spontaneous
  Country: US (occurrence: None)
  Receive Date: 20130417
  Receipt Date: 20130417
  Transmission Date: 20140414
  Serious: Yes (Other)
  Sender: FDA-Public Use
  Company Number: 001511907A

PATIENT
  Sex: Female

DRUGS (3)
  1. PROACTIV RENEWING CLEANSER [Suspect]
     Indication: ACNE
     Dosage: ONE DAILY DERMAL
     Dates: start: 20130302, end: 20130303
  2. PROACTIV REPAIRING TREATMENT [Suspect]
     Indication: ACNE
     Dates: start: 20130302, end: 20130303
  3. PROACTIV REFINING MASK [Suspect]
     Indication: ACNE
     Dosage: ONCE DAILY DERMAL
     Dates: start: 20130302, end: 20130303

REACTIONS (4)
  - Hypersensitivity [None]
  - Pruritus [None]
  - Erythema [None]
  - Dyspnoea [None]
